FAERS Safety Report 9467774 (Version 1)
Quarter: 2013Q3

REPORT INFORMATION
  Report Type: Spontaneous
  Country: US (occurrence: None)
  Receive Date: 20130819
  Receipt Date: 20130819
  Transmission Date: 20140515
  Serious: No
  Sender: FDA-Public Use
  Company Number: None

PATIENT
  Age: 55 Year
  Sex: Male
  Weight: 99.79 kg

DRUGS (1)
  1. SODIUM SULFACETAMIDE AND SULFUR [Suspect]
     Indication: ROSACEA
     Dosage: FACIAL APPLICATION?APPLIED TO A SURFACE, USUALLY THE SKIN?
     Dates: start: 20130803, end: 20130803

REACTIONS (4)
  - Burning sensation [None]
  - Erythema [None]
  - Skin irritation [None]
  - Chemical injury [None]
